FAERS Safety Report 10901439 (Version 1)
Quarter: 2015Q1

REPORT INFORMATION
  Report Type: Spontaneous
  Country: US (occurrence: None)
  Receive Date: 20150303
  Receipt Date: 20150303
  Transmission Date: 20150721
  Serious: Yes (Life-Threatening, Hospitalization, Disabling)
  Sender: FDA-Public Use
  Company Number: None

PATIENT
  Age: 67 Year
  Sex: Male
  Weight: 139.3 kg

DRUGS (2)
  1. HALOPERIDOL. [Suspect]
     Active Substance: HALOPERIDOL
     Indication: NERVOUSNESS
     Dates: start: 20150130, end: 20150130
  2. HALOPERIDOL. [Suspect]
     Active Substance: HALOPERIDOL
     Indication: ANXIETY
     Dates: start: 20150130, end: 20150130

REACTIONS (16)
  - Catatonia [None]
  - Muscle rigidity [None]
  - Injury [None]
  - Seizure [None]
  - Nervousness [None]
  - Infection [None]
  - Hepatic enzyme increased [None]
  - Condition aggravated [None]
  - Skin abrasion [None]
  - Neuroleptic malignant syndrome [None]
  - Alcohol withdrawal syndrome [None]
  - Agitation [None]
  - Fall [None]
  - Body temperature increased [None]
  - Hepatic encephalopathy [None]
  - Delirium [None]

NARRATIVE: CASE EVENT DATE: 20150130
